FAERS Safety Report 25627999 (Version 1)
Quarter: 2025Q3

REPORT INFORMATION
  Report Type: Report from Study
  Country: US (occurrence: US)
  Receive Date: 20250731
  Receipt Date: 20250731
  Transmission Date: 20251021
  Serious: Yes (Death)
  Sender: BOEHRINGER INGELHEIM
  Company Number: US-BoehringerIngelheim-2025-BI-081339

PATIENT
  Age: 77 Year
  Sex: Male
  Weight: 65.7 kg

DRUGS (1)
  1. OFEV [Suspect]
     Active Substance: NINTEDANIB
     Indication: Idiopathic pulmonary fibrosis
     Dates: start: 2002, end: 20250625

REACTIONS (2)
  - Idiopathic pulmonary fibrosis [Fatal]
  - Weight decreased [Unknown]

NARRATIVE: CASE EVENT DATE: 20241201
